FAERS Safety Report 6392658-5 (Version None)
Quarter: 2009Q4

REPORT INFORMATION
  Report Type: 
  Country: None (occurrence: None)
  Receive Date: 20091007
  Receipt Date: 20090717
  Transmission Date: 20100525
  Serious: No
  Sender: FDA-Public Use
  Company Number: US-ALLERGAN-0910065US

PATIENT
  Sex: Female

DRUGS (2)
  1. LATISSE [Suspect]
     Indication: HYPOTRICHOSIS
     Dosage: UNK, UNKNOWN
     Route: 061
  2. KLONOPIN [Concomitant]
     Dosage: UNK, QD

REACTIONS (2)
  - EYE IRRITATION [None]
  - EYE PRURITUS [None]
